FAERS Safety Report 10168427 (Version 2)
Quarter: 2014Q2

REPORT INFORMATION
  Report Type: Spontaneous
  Country: US (occurrence: US)
  Receive Date: 20140513
  Receipt Date: 20140520
  Transmission Date: 20141212
  Serious: Yes (Other)
  Sender: FDA-Public Use
  Company Number: US-009507513-1405USA005955

PATIENT
  Age: 73 Year
  Sex: Male

DRUGS (2)
  1. EMEND [Suspect]
     Indication: PROPHYLAXIS OF NAUSEA AND VOMITING
     Dosage: 125MG 1ST DAY OF CHEMO, 80MG ON THE 2ND AND 3RD DAYS
     Route: 048
     Dates: start: 201403, end: 20140509
  2. ZOFRAN [Concomitant]

REACTIONS (4)
  - Malnutrition [Not Recovered/Not Resolved]
  - Gastrostomy [Not Recovered/Not Resolved]
  - Dysphagia [Unknown]
  - Incorrect route of drug administration [Unknown]
